FAERS Safety Report 9372710 (Version 2)
Quarter: 2013Q3

REPORT INFORMATION
  Report Type: Report from Study
  Country: DE (occurrence: DE)
  Receive Date: 20130627
  Receipt Date: 20130906
  Transmission Date: 20140515
  Serious: Yes (Hospitalization)
  Sender: FDA-Public Use
  Company Number: DE-ABBOTT-13P-062-1109702-00

PATIENT
  Age: 25 Year
  Sex: Female
  Weight: 59.6 kg

DRUGS (10)
  1. HUMIRA [Suspect]
     Indication: CROHN^S DISEASE
     Route: 058
     Dates: start: 20130305, end: 201305
  2. AZATHIOPRINE [Concomitant]
     Indication: PRODUCT USED FOR UNKNOWN INDICATION
     Dates: start: 20130128, end: 20130301
  3. AZATHIOPRINE [Concomitant]
     Dates: start: 20130301
  4. BUDESONID [Concomitant]
     Indication: PRODUCT USED FOR UNKNOWN INDICATION
  5. PREDNISOLONE [Concomitant]
     Indication: PRODUCT USED FOR UNKNOWN INDICATION
     Dates: start: 201212
  6. PANTOPRAZOLE [Concomitant]
     Indication: PRODUCT USED FOR UNKNOWN INDICATION
  7. IDEOS [Concomitant]
     Indication: PRODUCT USED FOR UNKNOWN INDICATION
  8. NOVAMIN [Concomitant]
     Indication: PRODUCT USED FOR UNKNOWN INDICATION
  9. DIMETICON [Concomitant]
     Indication: PRODUCT USED FOR UNKNOWN INDICATION
     Dosage: 30-45 DROPS EVERY 4-6 HOURS AS NEEDED
  10. MACROGOL [Concomitant]
     Indication: PRODUCT USED FOR UNKNOWN INDICATION

REACTIONS (13)
  - Bowel movement irregularity [Recovered/Resolved]
  - C-reactive protein increased [Recovered/Resolved]
  - Sunburn [Recovered/Resolved]
  - Abscess bacterial [Recovered/Resolved]
  - Candida infection [Recovered/Resolved]
  - Abscess intestinal [Recovered/Resolved]
  - Appendicectomy [Not Recovered/Not Resolved]
  - Bladder operation [Not Recovered/Not Resolved]
  - Abdominal pain [Recovered/Resolved]
  - Flatulence [Recovered/Resolved]
  - Abdominal pain [Recovered/Resolved]
  - Immunosuppression [Unknown]
  - Inflammatory bowel disease [Not Recovered/Not Resolved]
